FAERS Safety Report 7343837-1 (Version None)
Quarter: 2011Q1

REPORT INFORMATION
  Report Type: 
  Country: None (occurrence: None)
  Receive Date: 20110310
  Receipt Date: 20110303
  Transmission Date: 20110831
  Serious: Yes (Hospitalization, Other)
  Sender: FDA-Public Use
  Company Number: US-US-EMD SERONO, INC.-236054K09USA

PATIENT
  Sex: Male

DRUGS (8)
  1. HYDROCHLOROTHIAZIDE [Concomitant]
     Indication: BLOOD CHOLESTEROL ABNORMAL
     Dates: end: 20090501
  2. DIAZEPAM [Concomitant]
     Indication: MUSCULOSKELETAL STIFFNESS
     Dates: end: 20090501
  3. BACLOFEN [Concomitant]
     Indication: MUSCULOSKELETAL STIFFNESS
     Dates: end: 20090501
  4. AMITRIPTYLINE HCL [Concomitant]
     Indication: SLEEP DISORDER
     Dates: end: 20090501
  5. ZOLOFT [Concomitant]
     Indication: DEPRESSION
     Dates: start: 20030101, end: 20090501
  6. LIPITOR [Concomitant]
     Indication: BLOOD CHOLESTEROL ABNORMAL
     Dates: end: 20090501
  7. REBIF [Suspect]
     Indication: MULTIPLE SCLEROSIS
     Route: 058
     Dates: start: 20031226, end: 20090501
  8. REBIF [Suspect]
     Route: 058

REACTIONS (5)
  - INCISION SITE PAIN [None]
  - INGUINAL HERNIA [None]
  - VOLVULUS [None]
  - WEIGHT DECREASED [None]
  - ASTHENIA [None]
